FAERS Safety Report 7787480-9 (Version None)
Quarter: 2011Q3

REPORT INFORMATION
  Report Type: 
  Country: None (occurrence: None)
  Receive Date: 20110929
  Receipt Date: 20110921
  Transmission Date: 20111222
  Serious: Yes (Death, Life-Threatening, Hospitalization)
  Sender: FDA-Public Use
  Company Number: FR-ACTELION-A-CH2011-45349

PATIENT
  Sex: Female
  Weight: 84 kg

DRUGS (11)
  1. HYDROCHLOROTHIAZIDE [Concomitant]
  2. ACETAMINOPHEN [Concomitant]
  3. IBANDRONATE SODIUM [Concomitant]
  4. TRACLEER [Suspect]
     Indication: SKIN ULCER
     Dosage: 125 MG, BID
     Route: 048
     Dates: end: 20110315
  5. METHOTREXATE [Concomitant]
  6. BISOPROLOL [Concomitant]
     Dosage: UNK
     Dates: start: 20110306
  7. PREDNISONE [Concomitant]
  8. AMLODIPINE [Concomitant]
  9. ASPIRIN [Concomitant]
  10. TRACLEER [Suspect]
     Dosage: 62.5 MG, BID
     Route: 048
     Dates: start: 20091127
  11. ENALAPRIL MALEATE [Concomitant]

REACTIONS (7)
  - ABDOMINAL PAIN UPPER [None]
  - INTESTINAL OBSTRUCTION [None]
  - METASTASES TO LIVER [None]
  - METASTASES TO LUNG [None]
  - LEFT VENTRICULAR FAILURE [None]
  - ADENOCARCINOMA PANCREAS [None]
  - MULTI-ORGAN FAILURE [None]
